FAERS Safety Report 13102250 (Version 2)
Quarter: 2017Q1

REPORT INFORMATION
  Report Type: Spontaneous
  Country: IT (occurrence: IT)
  Receive Date: 20170110
  Receipt Date: 20170119
  Transmission Date: 20170428
  Serious: Yes (Other)
  Sender: FDA-Public Use
  Company Number: IT-PFIZER INC-2017010776

PATIENT
  Age: 45 Year
  Sex: Male

DRUGS (2)
  1. NORVASC [Suspect]
     Active Substance: AMLODIPINE BESYLATE
     Indication: PALPITATIONS
     Dosage: 5 MG, DAILY
     Route: 048
     Dates: start: 20170103, end: 20170105
  2. TRIATEC /00885601/ [Suspect]
     Active Substance: RAMIPRIL
     Indication: PALPITATIONS
     Dosage: 2.5 MG, DAILY
     Route: 048
     Dates: start: 20170103, end: 20170105

REACTIONS (1)
  - Clonus [Recovered/Resolved]

NARRATIVE: CASE EVENT DATE: 20170105
